FAERS Safety Report 19849358 (Version 4)
Quarter: 2022Q3

REPORT INFORMATION
  Report Type: Report from Study
  Country: JP (occurrence: None)
  Receive Date: 20210917
  Receipt Date: 20220915
  Transmission Date: 20221027
  Serious: Yes (Other)
  Sender: FDA-Public Use
  Company Number: JP-MERCK HEALTHCARE KGAA-9207042

PATIENT
  Age: 74 Year
  Sex: Female
  Weight: 62 kg

DRUGS (6)
  1. BAVENCIO [Suspect]
     Active Substance: AVELUMAB
     Indication: Metastatic renal cell carcinoma
     Dosage: 250 ML/HR
     Route: 041
     Dates: start: 20201120
  2. BAVENCIO [Suspect]
     Active Substance: AVELUMAB
     Route: 042
     Dates: start: 20210813
  3. INLYTA [Suspect]
     Active Substance: AXITINIB
     Indication: Metastatic renal cell carcinoma
     Route: 048
     Dates: start: 20201120, end: 20210104
  4. INLYTA [Suspect]
     Active Substance: AXITINIB
     Route: 048
     Dates: start: 20210215, end: 20210301
  5. INLYTA [Suspect]
     Active Substance: AXITINIB
     Route: 048
     Dates: start: 20210315, end: 20210813
  6. ACETAMINOPHEN [Concomitant]
     Active Substance: ACETAMINOPHEN
     Indication: Premedication
     Route: 048
     Dates: start: 20201120, end: 20201120

REACTIONS (2)
  - Hypothyroidism [Recovering/Resolving]
  - Hypertension [Unknown]

NARRATIVE: CASE EVENT DATE: 20210813
